FAERS Safety Report 24577013 (Version 2)
Quarter: 2024Q4

REPORT INFORMATION
  Report Type: Spontaneous
  Country: FR (occurrence: FR)
  Receive Date: 20241104
  Receipt Date: 20241108
  Transmission Date: 20250114
  Serious: Yes (Death, Other)
  Sender: MERCK
  Company Number: FR-009507513-2410FRA013163

PATIENT
  Age: 5 Decade
  Sex: Male

DRUGS (1)
  1. PEMBROLIZUMAB [Suspect]
     Active Substance: PEMBROLIZUMAB
     Dosage: UNK

REACTIONS (6)
  - Status epilepticus [Fatal]
  - Neurotoxicity [Fatal]
  - Hypophysitis [Fatal]
  - Hyponatraemia [Fatal]
  - Hypoglycaemia [Fatal]
  - Product use in unapproved indication [Unknown]
